FAERS Safety Report 6098920-8 (Version None)
Quarter: 2009Q1

REPORT INFORMATION
  Report Type: 
  Country: None (occurrence: None)
  Receive Date: 20090302
  Receipt Date: 20090218
  Transmission Date: 20090719
  Serious: Yes (Other)
  Sender: FDA-Public Use
  Company Number: US-CVT-090017

PATIENT

DRUGS (15)
  1. RANEXA [Suspect]
     Indication: ANGINA PECTORIS
     Dosage: 500 MG, BID
     Route: 048
     Dates: start: 20090101, end: 20090201
  2. RANEXA [Suspect]
     Dosage: 1000 MG, BID
     Route: 048
     Dates: start: 20090201, end: 20090201
  3. RANEXA [Suspect]
     Dosage: 500 MG, BID
     Route: 048
     Dates: start: 20090201
  4. ASPIRIN [Concomitant]
     Dosage: 325 MG, QD
  5. HYDRALAZINE HCL [Concomitant]
     Dosage: 50 MG, BID
  6. LEXAPRO [Concomitant]
     Dosage: 10 MG, QD
  7. METOPROLOL                         /00376901/ [Concomitant]
     Dosage: 50 MG, UNK
  8. CENTRUM SILVER [Concomitant]
     Dosage: 1 TABLET, QD
  9. NEXIUM [Concomitant]
     Dosage: 40 MG, UNK
  10. NITROGLYCERIN [Concomitant]
     Dosage: UNK, PRN
  11. PLAVIX [Concomitant]
  12. SIMVASTATIN [Concomitant]
     Dosage: 40 MG, QD
  13. TYLENOL FORTE [Concomitant]
     Dosage: 500 MG, BID
  14. ZYRTEC [Concomitant]
     Dosage: 10 MG, QD
  15. IMDUR [Concomitant]
     Dosage: 30 MG, BID

REACTIONS (1)
  - HALLUCINATION, VISUAL [None]
